FAERS Safety Report 7647768-9 (Version None)
Quarter: 2011Q3

REPORT INFORMATION
  Report Type: 
  Country: None (occurrence: None)
  Receive Date: 20110801
  Receipt Date: 20110713
  Transmission Date: 20111222
  Serious: No
  Sender: FDA-Public Use
  Company Number: US-B.I. PHARMACEUTICALS,INC./RIDGEFIELD-2011-BP-03007BP

PATIENT
  Sex: Male

DRUGS (5)
  1. SPIRIVA [Suspect]
     Indication: CHRONIC OBSTRUCTIVE PULMONARY DISEASE
     Dosage: 18 MCG
     Route: 055
     Dates: start: 20050501
  2. ALBUTER SULFATE NEB [Concomitant]
     Indication: DYSPNOEA
  3. ALBUTEROL SULFATE AUTOHALER [Concomitant]
     Indication: CHRONIC OBSTRUCTIVE PULMONARY DISEASE
  4. OXYGEN [Concomitant]
     Indication: DYSPNOEA
  5. SYMBICORT [Concomitant]
     Indication: DYSPNOEA

REACTIONS (2)
  - PROSTATOMEGALY [None]
  - URINARY RETENTION [None]
